FAERS Safety Report 8213723-3 (Version None)
Quarter: 2012Q1

REPORT INFORMATION
  Report Type: 
  Country: None (occurrence: None)
  Receive Date: 20120315
  Receipt Date: 20120307
  Transmission Date: 20120608
  Serious: Yes (Hospitalization)
  Sender: FDA-Public Use
  Company Number: US-ASTRAZENECA-2011SE55410

PATIENT
  Age: 50 Year
  Sex: Female
  Weight: 117.9 kg

DRUGS (14)
  1. PRILOSEC OTC [Suspect]
     Indication: HIATUS HERNIA
     Route: 048
  2. PROZAC [Concomitant]
     Indication: DEPRESSION
     Route: 048
  3. XANAX [Concomitant]
     Indication: ANXIETY
     Dosage: 2 MG EVERY 4-6 H
     Route: 048
  4. ALBUTEROL [Concomitant]
     Indication: ASTHMA
     Dosage: Q 6 H
     Route: 048
  5. AMBIEN [Concomitant]
     Indication: SLEEP DISORDER
     Route: 048
  6. SEROQUEL [Suspect]
     Indication: POST-TRAUMATIC STRESS DISORDER
     Route: 048
  7. SEROQUEL [Suspect]
     Route: 048
  8. SEROQUEL [Suspect]
     Route: 048
  9. PROMETEZIN [Concomitant]
     Indication: VOMITING
     Route: 048
  10. PRILOSEC OTC [Suspect]
     Indication: GASTROOESOPHAGEAL REFLUX DISEASE
     Route: 048
  11. VITRONE [Concomitant]
     Indication: ANAEMIA
     Route: 048
  12. SEROQUEL [Suspect]
     Indication: BIPOLAR I DISORDER
     Route: 048
  13. PRILOSEC OTC [Suspect]
     Route: 048
  14. PRILOSEC OTC [Suspect]
     Route: 048

REACTIONS (9)
  - MALAISE [None]
  - HIATUS HERNIA [None]
  - FEAR OF DISEASE [None]
  - PNEUMONIA [None]
  - ANAEMIA [None]
  - DRUG WITHDRAWAL SYNDROME [None]
  - HAEMORRHAGE [None]
  - OFF LABEL USE [None]
  - DRUG DOSE OMISSION [None]
